FAERS Safety Report 4590199-9 (Version None)
Quarter: 2005Q1

REPORT INFORMATION
  Report Type: 
  Country: None (occurrence: None)
  Receive Date: 20050217
  Receipt Date: 20050204
  Transmission Date: 20050727
  Serious: Yes (Other)
  Sender: FDA-Public Use
  Company Number: 2005025661

PATIENT
  Sex: Female
  Weight: 81.6475 kg

DRUGS (4)
  1. NORVASC [Suspect]
     Indication: HYPERTENSION
     Dosage: 5 MG (5 MG, QD),
  2. FUROSEMIDE [Concomitant]
  3. IRBESARTAN [Concomitant]
  4. ATENOLOL [Concomitant]

REACTIONS (3)
  - BODY HEIGHT DECREASED [None]
  - BREAST HAEMORRHAGE [None]
  - BREAST MASS [None]
